FAERS Safety Report 8574495 (Version 2)
Quarter: 2013Q1

REPORT INFORMATION
  Report Type: Spontaneous
  Country: US (occurrence: US)
  Receive Date: 20120522
  Receipt Date: 20130131
  Transmission Date: 20140127
  Serious: Yes (Hospitalization)
  Sender: FDA-Public Use
  Company Number: US-ASTRAZENECA-2012SE28921

PATIENT
  Age: 77 Year
  Sex: Female
  Weight: 90.7 kg

DRUGS (11)
  1. NEXIUM [Suspect]
     Indication: GASTROOESOPHAGEAL REFLUX DISEASE
     Route: 048
     Dates: start: 2002, end: 2007
  2. NEXIUM [Suspect]
     Indication: GASTROOESOPHAGEAL REFLUX DISEASE
     Route: 048
     Dates: start: 2007
  3. METOPROLOL [Suspect]
     Indication: BLOOD PRESSURE ABNORMAL
     Route: 065
  4. PRILOSEC [Suspect]
     Indication: GASTROOESOPHAGEAL REFLUX DISEASE
     Route: 048
  5. PRILOSEC OTC [Suspect]
     Route: 048
  6. PREVACID [Suspect]
     Route: 065
     Dates: start: 2007
  7. FUROSEMIDE [Concomitant]
     Indication: DIURETIC THERAPY
     Route: 048
  8. COZAAR [Concomitant]
     Indication: BLOOD PRESSURE ABNORMAL
     Route: 048
  9. CARDIZEM LA [Concomitant]
     Indication: BLOOD PRESSURE ABNORMAL
     Dosage: 300/24, DAILY
     Route: 048
  10. SIMVASTATIN [Concomitant]
     Indication: BLOOD CHOLESTEROL ABNORMAL
     Route: 048
  11. ZETIA [Concomitant]
     Route: 048

REACTIONS (13)
  - Cardiac disorder [Unknown]
  - Diabetes mellitus [Unknown]
  - Pneumonia [Unknown]
  - Gastrooesophageal reflux disease [Unknown]
  - Salivary gland disorder [Unknown]
  - Red blood cell count decreased [Unknown]
  - Odynophagia [Unknown]
  - Weight abnormal [Unknown]
  - Gastrooesophageal reflux disease [Unknown]
  - Dysgeusia [Unknown]
  - Drug ineffective [Unknown]
  - Drug ineffective [Unknown]
  - Drug dose omission [Unknown]
